FAERS Safety Report 15449986 (Version 1)
Quarter: 2018Q3

REPORT INFORMATION
  Report Type: Spontaneous
  Country: US (occurrence: US)
  Receive Date: 20180927
  Receipt Date: 20180927
  Transmission Date: 20181010
  Serious: Yes (Other)
  Sender: FDA-Public Use
  Company Number: None

PATIENT
  Age: 50 Year
  Sex: Female
  Weight: 86.4 kg

DRUGS (16)
  1. HUMIRA [Concomitant]
     Active Substance: ADALIMUMAB
  2. ATROVASTATIN, [Concomitant]
  3. GABAPENTIN. [Concomitant]
     Active Substance: GABAPENTIN
  4. TRAMADOL. [Concomitant]
     Active Substance: TRAMADOL
  5. ONDANSETRON [Concomitant]
     Active Substance: ONDANSETRON
  6. FENOFIBRATE. [Concomitant]
     Active Substance: FENOFIBRATE
  7. KRILL OIL [Concomitant]
     Active Substance: DIETARY SUPPLEMENT
  8. VITAMIN B12 [Concomitant]
     Active Substance: CYANOCOBALAMIN
  9. HUMIRA [Suspect]
     Active Substance: ADALIMUMAB
     Indication: CROHN^S DISEASE
     Dosage: ?          QUANTITY:1 INJECTION(S);OTHER FREQUENCY:EVERY OTHER WEEK;?
     Route: 030
     Dates: start: 20171229
  10. IMURAN [Concomitant]
     Active Substance: AZATHIOPRINE
  11. VITAMIN D [Concomitant]
     Active Substance: CHOLECALCIFEROL
  12. CALCIUM [Concomitant]
     Active Substance: CALCIUM
  13. LEVOTHYROXINE. [Concomitant]
     Active Substance: LEVOTHYROXINE
  14. BIOTIN [Concomitant]
     Active Substance: BIOTIN
  15. MAGNESIUM [Concomitant]
     Active Substance: MAGNESIUM
  16. MULTIVITAMIN [Concomitant]
     Active Substance: VITAMINS

REACTIONS (9)
  - Night sweats [None]
  - Hot flush [None]
  - Injection site pruritus [None]
  - Injection site swelling [None]
  - Injection site pain [None]
  - Injection site bruising [None]
  - Injection site erythema [None]
  - Injection site warmth [None]
  - Injection site discolouration [None]

NARRATIVE: CASE EVENT DATE: 20171229
